FAERS Safety Report 16105977 (Version 1)
Quarter: 2019Q1

REPORT INFORMATION
  Report Type: Spontaneous
  Country: US (occurrence: US)
  Receive Date: 20190322
  Receipt Date: 20190322
  Transmission Date: 20190418
  Serious: Yes (Other)
  Sender: FDA-Public Use
  Company Number: US-SA-2019SA075691

PATIENT
  Age: 40 Year
  Sex: Female

DRUGS (3)
  1. BACLOFEN. [Concomitant]
     Active Substance: BACLOFEN
  2. TOPAMAX [Concomitant]
     Active Substance: TOPIRAMATE
  3. AUBAGIO [Suspect]
     Active Substance: TERIFLUNOMIDE
     Dosage: UNK
     Dates: start: 201510

REACTIONS (3)
  - Suicide attempt [Unknown]
  - Drug hypersensitivity [Unknown]
  - Self-injurious ideation [Unknown]

NARRATIVE: CASE EVENT DATE: 201510
